FAERS Safety Report 19229378 (Version 1)
Quarter: 2021Q2

REPORT INFORMATION
  Report Type: Spontaneous
  Country: GB (occurrence: GB)
  Receive Date: 20210507
  Receipt Date: 20210507
  Transmission Date: 20210717
  Serious: Yes (Disabling, Other)
  Sender: FDA-Public Use
  Company Number: GB-TEVA-2021-GB-1907510

PATIENT
  Age: 55 Year
  Sex: Male

DRUGS (2)
  1. ACICLOVIR [Concomitant]
     Active Substance: ACYCLOVIR
     Dosage: THREE COURSES OVER THREE WEEKS
  2. CLARITHROMYCIN. [Suspect]
     Active Substance: CLARITHROMYCIN

REACTIONS (3)
  - Ear infection [Recovering/Resolving]
  - Paraesthesia [Recovering/Resolving]
  - Herpes zoster [Recovering/Resolving]

NARRATIVE: CASE EVENT DATE: 20210323
